FAERS Safety Report 8234592-1 (Version None)
Quarter: 2012Q1

REPORT INFORMATION
  Report Type: 
  Country: None (occurrence: None)
  Receive Date: 20120326
  Receipt Date: 20120216
  Transmission Date: 20120608
  Serious: No
  Sender: FDA-Public Use
  Company Number: US-MYLANLABS-2012S1003484

PATIENT
  Sex: Male

DRUGS (4)
  1. CLONIDINE [Concomitant]
     Route: 048
  2. XANAX [Concomitant]
     Route: 048
  3. NIFEDIPINE [Suspect]
     Indication: HYPERTENSION
     Route: 048
     Dates: start: 20111028
  4. TAMOXIFEN CITRATE [Concomitant]
     Route: 048

REACTIONS (3)
  - DRUG INEFFECTIVE [None]
  - HYPERTENSION [None]
  - MEDICATION RESIDUE [None]
